FAERS Safety Report 4697893-X (Version None)
Quarter: 2005Q2

REPORT INFORMATION
  Report Type: 
  Country: None (occurrence: None)
  Receive Date: 20050621
  Receipt Date: 20050621
  Transmission Date: 20051028
  Serious: Yes (Other)
  Sender: FDA-Public Use
  Company Number: None

PATIENT
  Sex: Male
  Weight: 68.6 kg

DRUGS (5)
  1. DAUNOMYCIN [Suspect]
     Indication: ACUTE LYMPHOCYTIC LEUKAEMIA
     Dosage: 60 MG/M2 IVP ON DAYS 1, 8, 15, AND 22
     Route: 042
     Dates: start: 20050429
  2. VINCRISTINE SULFATE [Suspect]
     Dosage: 1.4 MG/M2 IVP ON DAYS 1, 8, 15, AND 22
     Route: 042
  3. PREDNISONE TAB [Suspect]
     Dosage: 60 MG/M2 PO QD FOR 28 DAYS
     Route: 048
  4. L-ASPARAGINASE [Suspect]
     Dosage: 10000 UNIT/M2 IV OVER 30 MIN QD ON DAYS 17-28
     Route: 042
  5. METHOTREXATE [Suspect]
     Dosage: 12.5 MG IT ON DASY 15 ONLY UNLESS PT. RECEIVED TREATMENT FOR CNS LEUKEMIA
     Route: 037

REACTIONS (11)
  - ACTIVATED PARTIAL THROMBOPLASTIN TIME PROLONGED [None]
  - ALANINE AMINOTRANSFERASE INCREASED [None]
  - ASPARTATE AMINOTRANSFERASE INCREASED [None]
  - BLOOD ALKALINE PHOSPHATASE INCREASED [None]
  - BLOOD BILIRUBIN INCREASED [None]
  - BLOOD FIBRINOGEN DECREASED [None]
  - CHEST PAIN [None]
  - COAGULOPATHY [None]
  - DIZZINESS [None]
  - GALLBLADDER DISORDER [None]
  - HYPOTENSION [None]
